FAERS Safety Report 6775149-9 (Version None)
Quarter: 2010Q2

REPORT INFORMATION
  Report Type: 
  Country: None (occurrence: None)
  Receive Date: 20100617
  Receipt Date: 20100609
  Transmission Date: 20101027
  Serious: Yes (Hospitalization)
  Sender: FDA-Public Use
  Company Number: AU-CELGENEUS-008-21880-10061182

PATIENT
  Sex: Female

DRUGS (3)
  1. REVLIMID [Suspect]
     Route: 048
     Dates: start: 20090416
  2. EPILIM [Suspect]
     Indication: DRUG USE FOR UNKNOWN INDICATION
     Route: 065
  3. DEXAMETHASONE [Concomitant]
     Route: 065
     Dates: start: 20090410

REACTIONS (2)
  - DISEASE PROGRESSION [None]
  - ENCEPHALOPATHY [None]
